FAERS Safety Report 7082646-8 (Version None)
Quarter: 2010Q4

REPORT INFORMATION
  Report Type: 
  Country: None (occurrence: None)
  Receive Date: 20101104
  Receipt Date: 20101029
  Transmission Date: 20110411
  Serious: Yes (Death, Hospitalization, Other)
  Sender: FDA-Public Use
  Company Number: TW-JNJFOC-20101100319

PATIENT
  Age: 86 Year
  Sex: Female

DRUGS (5)
  1. LEVOFLOXACIN [Suspect]
     Indication: PYELONEPHRITIS
     Route: 048
  2. PALUX [Suspect]
     Indication: PERIPHERAL ISCHAEMIA
     Route: 065
  3. GLIMEPIRIDE [Suspect]
     Indication: ILL-DEFINED DISORDER
     Route: 065
  4. VOGLIBOSE [Suspect]
     Indication: ILL-DEFINED DISORDER
     Route: 065
  5. ALL OTHER THERAPEUTIC PRODUCTS [Concomitant]
     Indication: PERIPHERAL ISCHAEMIA
     Route: 065

REACTIONS (6)
  - BLOOD GLUCOSE INCREASED [None]
  - HYPOGLYCAEMIA [None]
  - HYPOGLYCAEMIC ENCEPHALOPATHY [None]
  - HYPOTENSION [None]
  - MYDRIASIS [None]
  - PERIPHERAL ISCHAEMIA [None]
